FAERS Safety Report 20785630 (Version 1)
Quarter: 2022Q2

REPORT INFORMATION
  Report Type: Spontaneous
  Country: US (occurrence: None)
  Receive Date: 20220504
  Receipt Date: 20220504
  Transmission Date: 20220721
  Serious: No
  Sender: FDA-Public Use
  Company Number: US-ROCHE-2805374

PATIENT
  Age: 51 Year
  Sex: Female
  Weight: 69.4 kg

DRUGS (6)
  1. OCREVUS [Suspect]
     Active Substance: OCRELIZUMAB
     Indication: Multiple sclerosis
     Route: 042
  2. PFIZER-BIONTECH COVID-19 VACCINE [Suspect]
     Active Substance: TOZINAMERAN
     Indication: Product used for unknown indication
     Dosage: RIGHT ARM
     Route: 065
     Dates: start: 20210329
  3. SOLU-MEDROL [Concomitant]
     Active Substance: METHYLPREDNISOLONE SODIUM SUCCINATE
  4. FAMOTIDINE [Concomitant]
     Active Substance: FAMOTIDINE
     Dosage: FOR 10 DAYS
  5. BENADRYL [Concomitant]
     Active Substance: DIPHENHYDRAMINE HYDROCHLORIDE
     Indication: Premedication
  6. PREDNISONE [Concomitant]
     Active Substance: PREDNISONE
     Dosage: FOR 5 DAYS
     Route: 048

REACTIONS (2)
  - Pharyngeal swelling [Recovering/Resolving]
  - Pruritus [Not Recovered/Not Resolved]

NARRATIVE: CASE EVENT DATE: 20210329
